FAERS Safety Report 7631869-5 (Version None)
Quarter: 2011Q3

REPORT INFORMATION
  Report Type: 
  Country: None (occurrence: None)
  Receive Date: 20110725
  Receipt Date: 20110422
  Transmission Date: 20111222
  Serious: No
  Sender: FDA-Public Use
  Company Number: US-BRISTOL-MYERS SQUIBB COMPANY-15691991

PATIENT
  Age: 53 Year
  Sex: Male

DRUGS (24)
  1. IBUPROFEN [Concomitant]
  2. CENTRUM SILVER [Concomitant]
  3. MAGNESIUM [Concomitant]
  4. FLOMAX [Concomitant]
  5. MIRALAX [Concomitant]
  6. XANAX [Concomitant]
  7. VITAMIN D [Concomitant]
  8. LIDODERM [Concomitant]
  9. COQ10 [Concomitant]
  10. INDERAL [Concomitant]
  11. LYRICA [Concomitant]
  12. DESONIDE [Concomitant]
     Dosage: DESONIDE CREAM
  13. VOLTAREN [Concomitant]
  14. CALCIUM CARBONATE [Concomitant]
  15. FISH OIL [Concomitant]
  16. FLONASE [Concomitant]
  17. AMBIEN [Concomitant]
  18. DOCUSATE [Concomitant]
  19. KETOCONAZOLE [Concomitant]
  20. COUMADIN [Suspect]
  21. PROTONIX [Concomitant]
  22. ZOCOR [Concomitant]
  23. ADVAIR DISKUS 100/50 [Concomitant]
  24. PULMICORT [Concomitant]

REACTIONS (1)
  - URINARY TRACT INFECTION [None]
